FAERS Safety Report 7509172-3 (Version None)
Quarter: 2011Q2

REPORT INFORMATION
  Report Type: 
  Country: None (occurrence: None)
  Receive Date: 20110527
  Receipt Date: 20100924
  Transmission Date: 20111010
  Serious: No
  Sender: FDA-Public Use
  Company Number: US-MYLANLABS-2010S1017692

PATIENT
  Sex: Female

DRUGS (10)
  1. PLAQUENIL [Concomitant]
  2. EVOXAC [Concomitant]
  3. VASOTEC [Concomitant]
  4. CYMBALTA [Concomitant]
  5. PROCARDIA [Concomitant]
  6. INDERAL [Concomitant]
  7. COUMADIN [Concomitant]
  8. ULTRAM [Concomitant]
  9. AMITRIPTYLINE HCL [Suspect]
     Indication: INSOMNIA
     Route: 048
     Dates: start: 20100101
  10. NEURONTIN [Concomitant]

REACTIONS (4)
  - DRUG INEFFECTIVE FOR UNAPPROVED INDICATION [None]
  - FATIGUE [None]
  - MIDDLE INSOMNIA [None]
  - MYALGIA [None]
